FAERS Safety Report 9779956 (Version 2)
Quarter: 2013Q4

REPORT INFORMATION
  Report Type: Spontaneous
  Country: FR (occurrence: FR)
  Receive Date: 20131223
  Receipt Date: 20131223
  Transmission Date: 20140711
  Serious: Yes (Hospitalization)
  Sender: FDA-Public Use
  Company Number: FR-WATSON-2011-24404

PATIENT
  Age: 64 Year
  Sex: Female

DRUGS (5)
  1. VENLAFAXINE [Suspect]
     Indication: INTERVERTEBRAL DISCITIS
     Dosage: 50 MG, DAILY
     Route: 048
     Dates: start: 20101119, end: 20110107
  2. MEROPENEM (UNKNOWN) [Suspect]
     Indication: INTERVERTEBRAL DISCITIS
     Dosage: 6 G, DAILY
     Route: 042
     Dates: start: 20101124, end: 20110107
  3. FLUCONAZOLE (UNKNOWN) [Suspect]
     Indication: INTERVERTEBRAL DISCITIS
     Dosage: 200 MG, DAILY
     Route: 048
     Dates: start: 20101123, end: 20110107
  4. CIPROFLOXACIN HYDROCHLORIDE (UNKNOWN) [Suspect]
     Indication: INTERVERTEBRAL DISCITIS
     Dosage: 2.25 MG, DAILY
     Route: 048
     Dates: start: 20101129, end: 20110107
  5. FOSFOCINA /00552502/ [Suspect]
     Indication: INTERVERTEBRAL DISCITIS
     Dosage: 12 G, DAILY
     Route: 042
     Dates: start: 20101123, end: 20110107

REACTIONS (3)
  - Rash pustular [Not Recovered/Not Resolved]
  - Pyrexia [Not Recovered/Not Resolved]
  - Eosinophilia [Not Recovered/Not Resolved]
